FAERS Safety Report 18345072 (Version 2)
Quarter: 2020Q4

REPORT INFORMATION
  Report Type: Report from Study
  Country: US (occurrence: US)
  Receive Date: 20201005
  Receipt Date: 20201019
  Transmission Date: 20210114
  Serious: No
  Sender: FDA-Public Use
  Company Number: US-SA-2020SA271515

PATIENT

DRUGS (1)
  1. ALIROCUMAB [Suspect]
     Active Substance: ALIROCUMAB
     Indication: HYPERCHOLESTEROLAEMIA
     Dosage: 150 MG, QOW
     Route: 058

REACTIONS (2)
  - Injection site haemorrhage [Unknown]
  - Hip surgery [Unknown]

NARRATIVE: CASE EVENT DATE: 2020
